FAERS Safety Report 13191689 (Version 1)
Quarter: 2017Q1

REPORT INFORMATION
  Report Type: Spontaneous
  Country: GR (occurrence: GR)
  Receive Date: 20170207
  Receipt Date: 20170207
  Transmission Date: 20170428
  Serious: Yes (Other)
  Sender: FDA-Public Use
  Company Number: GR-ROCHE-1889909

PATIENT
  Age: 56 Year
  Sex: Female

DRUGS (1)
  1. BONVIVA [Suspect]
     Active Substance: IBANDRONATE SODIUM
     Indication: OSTEOPENIA
     Route: 048
     Dates: start: 20170201

REACTIONS (8)
  - Tremor [Unknown]
  - Insomnia [Unknown]
  - Headache [Unknown]
  - Pain [Unknown]
  - Off label use [Unknown]
  - Bone pain [Unknown]
  - Pyrexia [Unknown]
  - Seizure [Unknown]
